FAERS Safety Report 10194778 (Version 2)
Quarter: 2014Q2

REPORT INFORMATION
  Report Type: Report from Study
  Country: DE (occurrence: DE)
  Receive Date: 20140526
  Receipt Date: 20140526
  Transmission Date: 20141212
  Serious: Yes (Death)
  Sender: FDA-Public Use
  Company Number: DE-ROCHE-1400414

PATIENT
  Age: 66 Year
  Sex: Male

DRUGS (2)
  1. RANIBIZUMAB [Suspect]
     Indication: VISUAL IMPAIRMENT
     Route: 050
     Dates: start: 20131126
  2. RANIBIZUMAB [Suspect]
     Indication: DIABETIC RETINAL OEDEMA
     Route: 050
     Dates: start: 20140128

REACTIONS (1)
  - Death [Fatal]
